FAERS Safety Report 16754252 (Version 3)
Quarter: 2019Q4

REPORT INFORMATION
  Report Type: Spontaneous
  Country: US (occurrence: US)
  Receive Date: 20190829
  Receipt Date: 20191203
  Transmission Date: 20200122
  Serious: Yes (Death, Other)
  Sender: FDA-Public Use
  Company Number: US-AKCEA THERAPEUTICS-2019IS001680

PATIENT

DRUGS (1)
  1. TEGSEDI [Suspect]
     Active Substance: INOTERSEN SODIUM
     Indication: CARDIAC AMYLOIDOSIS
     Dosage: 284 MG, EVERY 2 WEEKS
     Route: 058

REACTIONS (3)
  - Glomerulonephritis [Fatal]
  - Off label use [Unknown]
  - Proteinuria [Unknown]

NARRATIVE: CASE EVENT DATE: 201812
